FAERS Safety Report 23388612 (Version 2)
Quarter: 2024Q1

REPORT INFORMATION
  Report Type: Spontaneous
  Country: US (occurrence: US)
  Receive Date: 20240110
  Receipt Date: 20240313
  Transmission Date: 20240410
  Serious: Yes (Death)
  Sender: FDA-Public Use
  Company Number: US-KARYOPHARM-2024KPT000008

PATIENT

DRUGS (13)
  1. XPOVIO [Suspect]
     Active Substance: SELINEXOR
     Indication: Plasma cell myeloma
     Dosage: 40 MG, WEEKLY
     Route: 048
     Dates: start: 202302, end: 202401
  2. POMALYST [Concomitant]
     Active Substance: POMALIDOMIDE
  3. APREPITANT [Concomitant]
     Active Substance: APREPITANT
  4. CELEBREX [Concomitant]
     Active Substance: CELECOXIB
  5. CYCLOBENZAPRINE [Concomitant]
     Active Substance: CYCLOBENZAPRINE
  6. DEXAMETHASONE [Concomitant]
     Active Substance: DEXAMETHASONE
  7. MORPHINE [Concomitant]
     Active Substance: MORPHINE
  8. MUCINEX [Concomitant]
     Active Substance: GUAIFENESIN
  9. OMEPRAZOLE [Concomitant]
     Active Substance: OMEPRAZOLE
  10. STOOL SOFTENER (DOCUSATE) [Concomitant]
     Active Substance: DOCUSATE
  11. ROPINIROLE [Concomitant]
     Active Substance: ROPINIROLE
  12. TYLENOL [Concomitant]
     Active Substance: ACETAMINOPHEN
  13. XARELTO [Concomitant]
     Active Substance: RIVAROXABAN

REACTIONS (2)
  - Death [Fatal]
  - Nasopharyngitis [Unknown]

NARRATIVE: CASE EVENT DATE: 20240219
